FAERS Safety Report 24140546 (Version 2)
Quarter: 2024Q3

REPORT INFORMATION
  Report Type: Spontaneous
  Country: US (occurrence: US)
  Receive Date: 20240726
  Receipt Date: 20240826
  Transmission Date: 20241017
  Serious: No
  Sender: ROCHE
  Company Number: US-ROCHE-10000034148

PATIENT
  Age: 55 Year
  Sex: Female

DRUGS (12)
  1. XOLAIR [Suspect]
     Active Substance: OMALIZUMAB
     Indication: Urticaria
     Dosage: STRENGTH :300MG/2ML ?TAKEN 150MG AND 300MG TOTALLY 450MG
     Route: 058
  2. XOLAIR [Suspect]
     Active Substance: OMALIZUMAB
     Indication: Asthma
     Route: 058
  3. XOLAIR [Suspect]
     Active Substance: OMALIZUMAB
     Indication: Autonomic nervous system imbalance
  4. EPIPEN [Concomitant]
     Active Substance: EPINEPHRINE
     Indication: Anaphylactic reaction
  5. CROMOLYN SODIUM [Concomitant]
     Active Substance: CROMOLYN SODIUM
  6. DROXIDOPA [Concomitant]
     Active Substance: DROXIDOPA
  7. MIDODRINE HYDROCHLORIDE [Concomitant]
     Active Substance: MIDODRINE HYDROCHLORIDE
  8. ALAWAY [Concomitant]
     Active Substance: KETOTIFEN FUMARATE
  9. AMITRIPTYLINE [Concomitant]
     Active Substance: AMITRIPTYLINE
  10. BUDESONIDE [Concomitant]
     Active Substance: BUDESONIDE
     Dosage: DOSE: .5 MG/2ML
  11. ZYRTEC [Concomitant]
     Active Substance: CETIRIZINE HYDROCHLORIDE
  12. COSENTYX [Concomitant]
     Active Substance: SECUKINUMAB

REACTIONS (14)
  - COVID-19 [Unknown]
  - Asthma [Unknown]
  - Accidental exposure to product [Unknown]
  - Product storage error [Unknown]
  - Malaise [Unknown]
  - Wrong technique in product usage process [Unknown]
  - Device issue [Unknown]
  - Incorrect dose administered [Unknown]
  - Off label use [Unknown]
  - Gait inability [Unknown]
  - Dysphonia [Unknown]
  - Dizziness [Unknown]
  - Device malfunction [Unknown]
  - Product dose omission issue [Unknown]

NARRATIVE: CASE EVENT DATE: 20231201
